FAERS Safety Report 7453670-8 (Version None)
Quarter: 2011Q2

REPORT INFORMATION
  Report Type: 
  Country: None (occurrence: None)
  Receive Date: 20110502
  Receipt Date: 20110106
  Transmission Date: 20111010
  Serious: No
  Sender: FDA-Public Use
  Company Number: US-ASTRAZENECA-2011SE01027

PATIENT
  Sex: Female

DRUGS (2)
  1. NEXIUM [Suspect]
     Indication: OESOPHAGEAL PAIN
     Route: 048
     Dates: start: 20110106
  2. HYDROCHLOROTHIAZIDE [Concomitant]

REACTIONS (2)
  - OESOPHAGEAL PAIN [None]
  - DRUG INEFFECTIVE [None]
